FAERS Safety Report 8561847-3 (Version None)
Quarter: 2012Q3

REPORT INFORMATION
  Report Type: 
  Country: None (occurrence: None)
  Receive Date: 20120802
  Receipt Date: 20120703
  Transmission Date: 20120928
  Serious: Yes (Other)
  Sender: FDA-Public Use
  Company Number: US-AMGEN-USASP2012034041

PATIENT
  Sex: Male

DRUGS (3)
  1. VACCINES [Concomitant]
     Indication: HERPES ZOSTER
     Dosage: UNK
  2. HUMIRA [Suspect]
     Dosage: UNK
  3. ENBREL [Suspect]
     Indication: PRODUCT USED FOR UNKNOWN INDICATION
     Dosage: UNK

REACTIONS (1)
  - HERPES ZOSTER DISSEMINATED [None]
